FAERS Safety Report 9748568 (Version 1)
Quarter: 2013Q4

REPORT INFORMATION
  Report Type: Spontaneous
  Country: US (occurrence: None)
  Receive Date: 20131209
  Receipt Date: 20131209
  Transmission Date: 20140711
  Serious: Yes (Other)
  Sender: FDA-Public Use
  Company Number: None

PATIENT
  Age: 74 Year
  Sex: Female

DRUGS (9)
  1. REVLIMID, 5 MG, CELGENE [Suspect]
     Indication: PLASMA CELL MYELOMA
     Route: 048
     Dates: start: 201010, end: 201303
  2. REVLIMID [Concomitant]
  3. DEXAMETHASONE [Concomitant]
  4. LORAZEPAM [Concomitant]
  5. HUULIN R [Concomitant]
  6. HUMULIN N [Concomitant]
  7. LOVENOX [Concomitant]
  8. TIMOLOL OPHTHAL SOLN [Concomitant]
  9. LATANOPROST OPTHAL SOL [Concomitant]

REACTIONS (1)
  - Diarrhoea [None]
